FAERS Safety Report 9694981 (Version 1)
Quarter: 2013Q4

REPORT INFORMATION
  Report Type: Spontaneous
  Country: US (occurrence: US)
  Receive Date: 20131119
  Receipt Date: 20131119
  Transmission Date: 20140711
  Serious: No
  Sender: FDA-Public Use
  Company Number: US-009507513-1311USA002330

PATIENT
  Age: 32 Year
  Sex: Female

DRUGS (12)
  1. LISINOPRIL [Suspect]
     Dosage: 5 MG, QD
     Route: 048
  2. ASPIRIN [Suspect]
     Dosage: 325 MG, UNK
  3. ASPIRIN [Suspect]
     Dosage: 81 MG, QD
  4. PRASUGREL HYDROCHLORIDE [Suspect]
     Dosage: 60 MG, UNK
  5. PRASUGREL HYDROCHLORIDE [Suspect]
     Dosage: 10 MG, QD
  6. METOPROLOL [Suspect]
     Dosage: 50 MG, BID
  7. ATORVASTATIN [Suspect]
     Dosage: 80 MG, QD
  8. ATORVASTATIN [Suspect]
     Dosage: UNK
  9. MORPHINE SULFATE [Suspect]
     Dosage: 2 MG, UNK
  10. ENOXAPARIN SODIUM [Suspect]
     Dosage: 1 MG/KG, UNK
     Route: 058
  11. NITROGLYCERIN [Suspect]
     Route: 060
  12. TIROFIBAN HYDROCHLORIDE [Suspect]

REACTIONS (1)
  - Exposure during pregnancy [Recovered/Resolved]
